FAERS Safety Report 7197592-9 (Version None)
Quarter: 2010Q4

REPORT INFORMATION
  Report Type: 
  Country: None (occurrence: None)
  Receive Date: 20101213
  Receipt Date: 20101129
  Transmission Date: 20110411
  Serious: Yes (Other)
  Sender: FDA-Public Use
  Company Number: 020966

PATIENT
  Sex: Female
  Weight: 46 kg

DRUGS (3)
  1. KEPPRA [Suspect]
     Indication: EPILEPSY
     Dosage: 500 MG BID, ORAL
     Route: 048
     Dates: start: 20101018, end: 20101022
  2. PREDNISONE [Concomitant]
  3. ALLEGRA [Concomitant]

REACTIONS (2)
  - CONVULSION [None]
  - VISUAL ACUITY REDUCED [None]
